FAERS Safety Report 4481348-1 (Version None)
Quarter: 2004Q4

REPORT INFORMATION
  Report Type: 
  Country: None (occurrence: None)
  Receive Date: 20041021
  Receipt Date: 20040907
  Transmission Date: 20050328
  Serious: Yes (Hospitalization)
  Sender: FDA-Public Use
  Company Number: JP-GLAXOSMITHKLINE-B0344957A

PATIENT
  Age: 46 Year
  Sex: Female
  Weight: 52 kg

DRUGS (4)
  1. ZANTAC [Suspect]
     Indication: GASTRIC ULCER
     Dosage: 150MG TWICE PER DAY
     Route: 048
     Dates: start: 20040810, end: 20040831
  2. GASLON N [Concomitant]
     Indication: GASTRIC MUCOSAL LESION
     Dosage: 2MG TWICE PER DAY
     Route: 048
     Dates: start: 20040810, end: 20040831
  3. GEFANIL [Concomitant]
     Indication: GASTRIC ULCER
     Dosage: 50MG TWICE PER DAY
     Route: 048
     Dates: start: 20040810, end: 20040831
  4. GASCON [Concomitant]
     Indication: ABDOMINAL SYMPTOM
     Dosage: 80MG TWICE PER DAY
     Route: 048
     Dates: start: 20040810, end: 20040831

REACTIONS (8)
  - ABDOMINAL PAIN [None]
  - ALANINE AMINOTRANSFERASE INCREASED [None]
  - ASPARTATE AMINOTRANSFERASE INCREASED [None]
  - BLOOD CREATINE PHOSPHOKINASE INCREASED [None]
  - HEPATIC FUNCTION ABNORMAL [None]
  - MYALGIA [None]
  - PYREXIA [None]
  - RHABDOMYOLYSIS [None]
